FAERS Safety Report 10051641 (Version 3)
Quarter: 2014Q2

REPORT INFORMATION
  Report Type: Report from Study
  Country: AT (occurrence: AT)
  Receive Date: 20140401
  Receipt Date: 20140428
  Transmission Date: 20141212
  Serious: Yes (Death, Hospitalization)
  Sender: FDA-Public Use
  Company Number: AT-B.I. PHARMACEUTICALS,INC./RIDGEFIELD-2014-BI-13525BE

PATIENT
  Age: 48 Year
  Sex: Male
  Weight: 116 kg

DRUGS (6)
  1. AFATINIB [Suspect]
     Indication: NON-SMALL CELL LUNG CANCER
     Dosage: 40 MG
     Route: 048
     Dates: end: 20140202
  2. AFATINIB [Suspect]
     Dosage: 40 MG
     Route: 048
     Dates: start: 20140203, end: 20140312
  3. TAXOTERE [Suspect]
     Indication: PRODUCT USED FOR UNKNOWN INDICATION
     Route: 065
  4. HYDAL [Concomitant]
     Indication: PAIN
     Dosage: 16 MG
     Route: 048
     Dates: start: 20140130, end: 20140319
  5. FORTECORTIN [Concomitant]
     Indication: PAIN
     Dosage: 8 MG
     Route: 048
     Dates: start: 20140318, end: 20140319
  6. NACL CAP [Concomitant]
     Indication: HYPONATRAEMIA
     Dosage: 2 ANZ
     Route: 048
     Dates: start: 20140314, end: 20140319

REACTIONS (8)
  - Malignant neoplasm progression [Fatal]
  - Pleural effusion [Fatal]
  - Malignant neoplasm progression [Recovered/Resolved with Sequelae]
  - Pleural effusion [Recovered/Resolved with Sequelae]
  - Pleural effusion [Not Recovered/Not Resolved]
  - Malignant neoplasm progression [Not Recovered/Not Resolved]
  - Diarrhoea [Recovered/Resolved]
  - Rash [Not Recovered/Not Resolved]
